FAERS Safety Report 5859077-9 (Version None)
Quarter: 2008Q3

REPORT INFORMATION
  Report Type: 
  Country: None (occurrence: None)
  Receive Date: 20080827
  Receipt Date: 20080826
  Transmission Date: 20090109
  Serious: Yes (Other)
  Sender: FDA-Public Use
  Company Number: US-BRISTOL-MYERS SQUIBB COMPANY-14249130

PATIENT
  Age: 46 Year
  Sex: Male

DRUGS (5)
  1. REYATAZ [Interacting]
     Indication: HIV INFECTION
     Route: 048
     Dates: start: 20050324, end: 20080623
  2. DIDANOSINE [Suspect]
     Indication: HIV INFECTION
     Route: 048
     Dates: start: 20050324, end: 20080623
  3. ERYTHROMYCIN [Interacting]
     Indication: IMPAIRED GASTRIC EMPTYING
     Dates: end: 20080623
  4. RITONAVIR [Interacting]
     Indication: HIV INFECTION
     Route: 048
     Dates: start: 20050324, end: 20080623
  5. TENOFOVIR [Suspect]
     Indication: HIV INFECTION
     Route: 048
     Dates: start: 20050324, end: 20080623

REACTIONS (4)
  - CD4 LYMPHOCYTES DECREASED [None]
  - DRUG INTERACTION [None]
  - IMPAIRED GASTRIC EMPTYING [None]
  - VIRAL LOAD INCREASED [None]
